FAERS Safety Report 20531081 (Version 9)
Quarter: 2024Q3

REPORT INFORMATION
  Report Type: Spontaneous
  Country: US (occurrence: US)
  Receive Date: 20220301
  Receipt Date: 20240705
  Transmission Date: 20241016
  Serious: Yes (Disabling, Other)
  Sender: ORGANON
  Company Number: US-ORGANON-O2202USA002290

PATIENT
  Sex: Male

DRUGS (10)
  1. SINGULAIR [Suspect]
     Active Substance: MONTELUKAST SODIUM
     Indication: Asthma
     Dosage: CHEW AND SWALLOW ONE TABLET BY MOUTH EVERYDAY
     Route: 048
     Dates: start: 2006, end: 2012
  2. SINGULAIR [Suspect]
     Active Substance: MONTELUKAST SODIUM
     Dosage: 5 MG OR 10 MG TABLETS; CHEW AND SWALLOW ONE TABLET BY MOUTH EVERYDAY
     Route: 048
     Dates: start: 2006, end: 2008
  3. SINGULAIR [Suspect]
     Active Substance: MONTELUKAST SODIUM
     Dosage: 5 MG OR 10 MG TABLETS
     Route: 048
     Dates: start: 2008, end: 2009
  4. SINGULAIR [Suspect]
     Active Substance: MONTELUKAST SODIUM
     Dosage: 5 MG OR 10 MG TABLETS
     Route: 048
     Dates: start: 2009, end: 2011
  5. SINGULAIR [Suspect]
     Active Substance: MONTELUKAST SODIUM
     Dosage: 5 MG OR 10 MG TABLETS
     Route: 048
     Dates: start: 2011, end: 2015
  6. SINGULAIR [Suspect]
     Active Substance: MONTELUKAST SODIUM
     Dosage: ONE TABLET BY MOUTH DAILY IN THE EVENING
     Route: 048
  7. SINGULAIR [Suspect]
     Active Substance: MONTELUKAST SODIUM
     Dosage: ONE TABLET BY MOUTH DAILY IN THE EVENING
     Route: 048
     Dates: start: 20230607
  8. SINGULAIR [Suspect]
     Active Substance: MONTELUKAST SODIUM
     Dosage: ONE TABLET BY MOUTH DAILY IN THE EVENING
     Route: 048
     Dates: start: 20230804
  9. SINGULAIR [Suspect]
     Active Substance: MONTELUKAST SODIUM
     Dosage: ONE TABLET BY MOUTH DAILY IN THE EVENING
     Route: 048
     Dates: start: 20240206
  10. SINGULAIR [Suspect]
     Active Substance: MONTELUKAST SODIUM
     Dosage: 1 TABLET BY MOUTH EVERYDAY
     Route: 048

REACTIONS (44)
  - Neuropsychological symptoms [Not Recovered/Not Resolved]
  - Major depression [Recovered/Resolved]
  - Bipolar disorder [Recovering/Resolving]
  - Obsessive-compulsive disorder [Not Recovered/Not Resolved]
  - Dysphemia [Not Recovered/Not Resolved]
  - Hallucination [Recovered/Resolved]
  - Suicidal ideation [Unknown]
  - Intentional self-injury [Recovering/Resolving]
  - Schizophrenia [Unknown]
  - Major depression [Recovering/Resolving]
  - Drug abuse [Unknown]
  - Hallucination, auditory [Unknown]
  - Sleep disorder [Recovering/Resolving]
  - Nightmare [Unknown]
  - Anxiety [Recovered/Resolved]
  - Aggression [Unknown]
  - Affective disorder [Unknown]
  - Homicidal ideation [Unknown]
  - Emotional distress [Unknown]
  - Persistent depressive disorder [Recovering/Resolving]
  - Decreased activity [Unknown]
  - Generalised anxiety disorder [Unknown]
  - Social anxiety disorder [Unknown]
  - Vitamin D deficiency [Unknown]
  - Asthma [Unknown]
  - Rhinitis allergic [Unknown]
  - Gastrooesophageal reflux disease [Unknown]
  - Delayed sleep phase [Recovering/Resolving]
  - Palpitations [Unknown]
  - Insomnia [Recovering/Resolving]
  - Akathisia [Not Recovered/Not Resolved]
  - Weight increased [Unknown]
  - Abdominal discomfort [Unknown]
  - Weight decreased [Unknown]
  - Anger [Unknown]
  - Asthenia [Unknown]
  - Back pain [Unknown]
  - Sexual abuse [Unknown]
  - Post-traumatic stress disorder [Unknown]
  - Headache [Unknown]
  - Somatic symptom disorder [Unknown]
  - Decreased appetite [Unknown]
  - Infectious mononucleosis [Unknown]
  - Haematuria [Recovered/Resolved]

NARRATIVE: CASE EVENT DATE: 20100101
